FAERS Safety Report 13076548 (Version 2)
Quarter: 2020Q3

REPORT INFORMATION
  Report Type: Report from Study
  Country: US (occurrence: US)
  Receive Date: 20161230
  Receipt Date: 20170113
  Transmission Date: 20201105
  Serious: Yes (Hospitalization)
  Sender: FDA-Public Use
  Company Number: US-JNJFOC-20161225789

PATIENT
  Age: 58 Year
  Sex: Male

DRUGS (42)
  1. LIDOCAINE PRILOCAINE BIOGARAN [Concomitant]
     Indication: CHEST DISCOMFORT
     Dosage: 2.5?2.5% AT BED TIME
     Route: 061
     Dates: start: 20160122
  2. MARIJUANA [Concomitant]
     Active Substance: CANNABIS SATIVA SUBSP. INDICA TOP
     Indication: ANXIETY
     Dosage: 2?3 DROPS EVERY DAY
     Route: 048
     Dates: start: 20160527
  3. OXYCODONE [Concomitant]
     Active Substance: OXYCODONE
     Indication: CHEST DISCOMFORT
     Dosage: 5 MG 1 TAB, EVERY 4 HRS, PRN
     Route: 048
     Dates: start: 20160512
  4. IBUPROFEN. [Concomitant]
     Active Substance: IBUPROFEN
     Indication: EAR PAIN
     Route: 048
     Dates: start: 20141215
  5. IBUPROFEN. [Concomitant]
     Active Substance: IBUPROFEN
     Indication: BACK PAIN
     Route: 048
     Dates: start: 20141215
  6. POTASSIUM CHLORIDE. [Concomitant]
     Active Substance: POTASSIUM CHLORIDE
     Indication: HYPOKALAEMIA
     Dosage: 40 MEQ, ONCE
     Route: 048
     Dates: start: 20161123, end: 20161123
  7. IBRUTINIB [Suspect]
     Active Substance: IBRUTINIB
     Indication: NEOPLASM
     Route: 048
     Dates: start: 20161223
  8. MEDI4736 [Suspect]
     Active Substance: DURVALUMAB
     Indication: NEOPLASM
     Route: 042
     Dates: start: 20160803, end: 20161221
  9. ZOMETA [Concomitant]
     Active Substance: ZOLEDRONIC ACID
     Indication: METASTASES TO BONE
     Dosage: 4 MG, IN 100 ML NORMAL SALINE
     Route: 042
     Dates: start: 20161209, end: 20161209
  10. MOMETASONE FUROATE. [Concomitant]
     Active Substance: MOMETASONE FUROATE
     Indication: SEASONAL ALLERGY
     Dosage: 2 SPRAYS DAILY, PRN
     Route: 045
     Dates: start: 20160211
  11. NAPROXEN. [Concomitant]
     Active Substance: NAPROXEN
     Indication: INSOMNIA
     Route: 048
     Dates: start: 20160130
  12. LIDOCAINE PRILOCAINE BIOGARAN [Concomitant]
     Indication: CHEST PAIN
     Dosage: 2.5?2.5% AT BED TIME
     Route: 061
     Dates: start: 20160122
  13. MARIJUANA [Concomitant]
     Active Substance: CANNABIS SATIVA SUBSP. INDICA TOP
     Indication: CHEST PAIN
     Dosage: 2?3 DROPS EVERY DAY
     Route: 048
     Dates: start: 20160527
  14. IBRUTINIB [Suspect]
     Active Substance: IBRUTINIB
     Indication: NEOPLASM
     Route: 048
     Dates: start: 20160803, end: 20161221
  15. LORAZEPAM. [Concomitant]
     Active Substance: LORAZEPAM
     Indication: ANXIETY
     Route: 048
     Dates: start: 20150114
  16. LOPERAMIDE HCL [Concomitant]
     Active Substance: LOPERAMIDE HYDROCHLORIDE
     Indication: DIARRHOEA
     Dosage: 1 CAPSULE WITH EACH EPISODE, PRN
     Route: 048
     Dates: start: 20161123
  17. NAPROXEN. [Concomitant]
     Active Substance: NAPROXEN
     Indication: CHEST PAIN
     Route: 048
     Dates: start: 20160130
  18. MARIJUANA [Concomitant]
     Active Substance: CANNABIS SATIVA SUBSP. INDICA TOP
     Indication: CHEST PAIN
     Dosage: 30 MG CBD/5MG THC, QD
     Route: 048
     Dates: start: 20150226
  19. ADVIL [Concomitant]
     Active Substance: IBUPROFEN
     Indication: HEADACHE
     Route: 048
     Dates: start: 20150503
  20. ACETAMINOPHEN. [Concomitant]
     Active Substance: ACETAMINOPHEN
     Indication: HEADACHE
     Route: 048
     Dates: start: 20150826
  21. SUDAFED [Concomitant]
     Active Substance: PSEUDOEPHEDRINE HYDROCHLORIDE
     Indication: SEASONAL ALLERGY
     Dosage: 10 MG, PRN
     Route: 048
     Dates: start: 20160224
  22. KLOR?CON [Concomitant]
     Active Substance: POTASSIUM CHLORIDE
     Indication: HYPOKALAEMIA
     Route: 048
     Dates: start: 20161123, end: 20161203
  23. OXYCODONE [Concomitant]
     Active Substance: OXYCODONE
     Indication: BACK PAIN
     Dosage: 5 MG 1 TAB, EVERY 4 HRS, PRN
     Route: 048
     Dates: start: 20160512
  24. ADVIL [Concomitant]
     Active Substance: IBUPROFEN
     Indication: CHEST PAIN
     Route: 048
     Dates: start: 20150503
  25. CAMPHO?PHENIQUE [Concomitant]
     Active Substance: CAMPHOR\PHENOL
     Indication: GLOSSODYNIA
     Dosage: 1 APPLICATION BED TIME, PRN
     Route: 004
     Dates: start: 20150722
  26. CALCIUM + VITAMIN D3 [Concomitant]
     Active Substance: CALCIUM CARBONATE\CHOLECALCIFEROL
     Indication: SUPPLEMENTATION THERAPY
     Route: 048
     Dates: start: 20160407
  27. PEPTO?BISMOL [Concomitant]
     Active Substance: BISMUTH SUBSALICYLATE
     Indication: DIARRHOEA
     Route: 048
     Dates: start: 20161121, end: 20161123
  28. METAMUCIL [Concomitant]
     Active Substance: PLANTAGO SEED
     Indication: DIARRHOEA
     Route: 048
     Dates: start: 20161123
  29. MEDI4736 [Suspect]
     Active Substance: DURVALUMAB
     Indication: NEOPLASM
     Route: 042
     Dates: start: 20170104
  30. NAPROXEN. [Concomitant]
     Active Substance: NAPROXEN
     Indication: CHEST DISCOMFORT
     Route: 048
     Dates: start: 20160130
  31. DIPHENOXYLATE HYDROCHLORIDE AND ATROPINE SULFATE [Concomitant]
     Active Substance: ATROPINE SULFATE\DIPHENOXYLATE HYDROCHLORIDE
     Indication: DIARRHOEA
     Dosage: 2.5/0.025 MG, 1 TAB QID
     Route: 048
     Dates: start: 20161207
  32. MARIJUANA [Concomitant]
     Active Substance: CANNABIS SATIVA SUBSP. INDICA TOP
     Indication: ANXIETY
     Dosage: 30 MG CBD/5MG THC, QD
     Route: 048
     Dates: start: 20150226
  33. IBUPROFEN. [Concomitant]
     Active Substance: IBUPROFEN
     Indication: CHEST DISCOMFORT
     Route: 048
     Dates: start: 20141215
  34. ADVIL [Concomitant]
     Active Substance: IBUPROFEN
     Indication: CHEST DISCOMFORT
     Route: 048
     Dates: start: 20150503
  35. TRIAMCINOLONE ACETONIDE. [Concomitant]
     Active Substance: TRIAMCINOLONE ACETONIDE
     Indication: GLOSSODYNIA
     Dosage: 0.1% TID, AFTER MEAL.
     Route: 004
     Dates: start: 20151021
  36. SIMETHICONE (DIMETHICONE) [Concomitant]
     Active Substance: DIMETHICONE
     Indication: GASTROOESOPHAGEAL REFLUX DISEASE
     Dosage: 1?2 TABLETS, PRN
     Route: 048
     Dates: start: 20161202
  37. ZOLPIDEM [Concomitant]
     Active Substance: ZOLPIDEM TARTRATE
     Indication: INSOMNIA
     Dosage: 10 MG PRN, AT BED TIME
     Route: 048
     Dates: start: 20150715
  38. LORAZEPAM. [Concomitant]
     Active Substance: LORAZEPAM
     Indication: INSOMNIA
     Route: 048
     Dates: start: 20150114
  39. IBUPROFEN. [Concomitant]
     Active Substance: IBUPROFEN
     Indication: HEADACHE
     Route: 048
     Dates: start: 20141215
  40. IBUPROFEN. [Concomitant]
     Active Substance: IBUPROFEN
     Indication: CHEST PAIN
     Route: 048
     Dates: start: 20141215
  41. ROBITUSSIN DM [Concomitant]
     Active Substance: DEXTROMETHORPHAN HYDROBROMIDE\GUAIFENESIN
     Indication: COUGH
     Dosage: 10 ML EVERY 4HRS, PRN
     Route: 048
     Dates: start: 20161026
  42. ADVIL [Concomitant]
     Active Substance: IBUPROFEN
     Indication: BACK PAIN
     Route: 048
     Dates: start: 20150503

REACTIONS (2)
  - Hypokalaemia [Recovered/Resolved]
  - Urinary retention [Recovered/Resolved]

NARRATIVE: CASE EVENT DATE: 20161221
